FAERS Safety Report 5334607-4 (Version None)
Quarter: 2007Q2

REPORT INFORMATION
  Report Type: 
  Country: None (occurrence: None)
  Receive Date: 20070525
  Receipt Date: 20070412
  Transmission Date: 20071010
  Serious: Yes (Hospitalization, Other)
  Sender: FDA-Public Use
  Company Number: GB-BRISTOL-MYERS SQUIBB COMPANY-13790167

PATIENT
  Age: 60 Year
  Sex: Male
  Weight: 103 kg

DRUGS (7)
  1. SINEMET [Suspect]
     Route: 048
  2. PLAVIX [Concomitant]
     Route: 048
     Dates: start: 20070401
  3. ASPIRIN [Concomitant]
     Route: 048
  4. ENTACAPONE [Concomitant]
     Route: 048
     Dates: start: 20061201
  5. METOPROLOL SUCCINATE [Concomitant]
     Route: 048
  6. RASAGILINE MESILATE [Concomitant]
     Route: 048
     Dates: start: 20070405
  7. VALSARTAN [Concomitant]
     Route: 048
     Dates: start: 20070409

REACTIONS (1)
  - ISCHAEMIC CARDIOMYOPATHY [None]
